FAERS Safety Report 18001446 (Version 1)
Quarter: 2020Q3

REPORT INFORMATION
  Report Type: Spontaneous
  Country: FR (occurrence: FR)
  Receive Date: 20200709
  Receipt Date: 20200709
  Transmission Date: 20201103
  Serious: Yes (Death)
  Sender: FDA-Public Use
  Company Number: FR-JNJFOC-20200705291

PATIENT
  Age: 0 Year
  Sex: Male
  Weight: 1.43 kg

DRUGS (1)
  1. XARELTO [Suspect]
     Active Substance: RIVAROXABAN
     Indication: PRODUCT USED FOR UNKNOWN INDICATION
     Route: 064
     Dates: start: 20191008, end: 20200213

REACTIONS (2)
  - Premature delivery [Fatal]
  - Anoxia [Fatal]

NARRATIVE: CASE EVENT DATE: 20200514
